FAERS Safety Report 5154924-0 (Version None)
Quarter: 2006Q4

REPORT INFORMATION
  Report Type: 
  Country: None (occurrence: None)
  Receive Date: 20061121
  Receipt Date: 20061116
  Transmission Date: 20070319
  Serious: Yes (Hospitalization)
  Sender: FDA-Public Use
  Company Number: IT-BRISTOL-MYERS SQUIBB COMPANY-13582176

PATIENT
  Age: 18 Year
  Sex: Male

DRUGS (2)
  1. PROZEF [Suspect]
     Route: 048
     Dates: start: 20061027, end: 20061104
  2. NIFLAM [Concomitant]
     Dates: start: 20061102

REACTIONS (2)
  - INFECTIOUS MONONUCLEOSIS [None]
  - RASH MACULO-PAPULAR [None]
